FAERS Safety Report 5412948-X (Version None)
Quarter: 2007Q3

REPORT INFORMATION
  Report Type: 
  Country: None (occurrence: None)
  Receive Date: 20070813
  Receipt Date: 20070803
  Transmission Date: 20080115
  Serious: Yes (Death, Life-Threatening, Other)
  Sender: FDA-Public Use
  Company Number: IT-MERCK-0705ITA00017

PATIENT
  Age: 7 Year
  Sex: Female

DRUGS (18)
  1. CANCIDAS [Suspect]
     Indication: BRONCHOPULMONARY ASPERGILLOSIS
     Route: 041
  2. CANCIDAS [Suspect]
     Route: 041
  3. CANCIDAS [Suspect]
     Route: 041
  4. CANCIDAS [Suspect]
     Route: 041
  5. CANCIDAS [Suspect]
     Route: 041
  6. CANCIDAS [Suspect]
     Route: 041
  7. CANCIDAS [Suspect]
     Route: 041
  8. CANCIDAS [Suspect]
     Route: 041
  9. AMPHOTERICIN B [Suspect]
     Route: 065
  10. FLUDARABINE PHOSPHATE [Concomitant]
     Route: 065
  11. ETOPOSIDE [Concomitant]
     Route: 065
  12. MELPHALAN [Concomitant]
     Route: 065
  13. ANTILYMPHOCYTE IMMUNOGLOBULIN [Suspect]
     Route: 065
  14. METHOTREXATE [Suspect]
     Route: 065
  15. CYCLOSPORINE [Suspect]
     Route: 065
  16. VORICONAZOLE [Suspect]
     Route: 065
  17. GRANULOCYTE COLONY STIMULATING FACTOR (UNSPECIFIED) [Concomitant]
     Indication: GRANULOCYTOPENIA
     Route: 065
  18. EPTACOG ALFA [Concomitant]
     Indication: HAEMORRHAGE
     Route: 065

REACTIONS (11)
  - ACUTE GRAFT VERSUS HOST DISEASE [None]
  - ACUTE MYELOID LEUKAEMIA [None]
  - BRONCHOPULMONARY ASPERGILLOSIS [None]
  - CHRONIC GRAFT VERSUS HOST DISEASE [None]
  - DRUG INEFFECTIVE [None]
  - GRAFT VERSUS HOST DISEASE [None]
  - HYPERGLYCAEMIA [None]
  - MEDICATION ERROR [None]
  - METABOLIC ENCEPHALOPATHY [None]
  - PEARSON'S SYNDROME [None]
  - RENAL TUBULAR DISORDER [None]
